FAERS Safety Report 4640321-0 (Version None)
Quarter: 2005Q2

REPORT INFORMATION
  Report Type: 
  Country: None (occurrence: None)
  Receive Date: 20050420
  Receipt Date: 20041129
  Transmission Date: 20051028
  Serious: No
  Sender: FDA-Public Use
  Company Number: US-GLAXOSMITHKLINE-A0535382A

PATIENT
  Age: 47 Year
  Sex: Male

DRUGS (2)
  1. ESKALITH [Suspect]
     Dosage: 450MG THREE TIMES PER DAY
     Route: 048
  2. IBUPROFEN [Concomitant]

REACTIONS (4)
  - AFFECT LABILITY [None]
  - DRUG INEFFECTIVE [None]
  - PHARMACEUTICAL PRODUCT COMPLAINT [None]
  - TREMOR [None]
